FAERS Safety Report 4429112-3 (Version None)
Quarter: 2004Q3

REPORT INFORMATION
  Report Type: 
  Country: None (occurrence: None)
  Receive Date: 20040726
  Receipt Date: 20040309
  Transmission Date: 20050211
  Serious: No
  Sender: FDA-Public Use
  Company Number: USA040258969

PATIENT
  Sex: Male
  Weight: 100 kg

DRUGS (7)
  1. FORTEO [Suspect]
     Indication: OSTEOPOROSIS
     Dates: start: 20040101
  2. FOSAMAX [Concomitant]
  3. POTASSIUM CHLORIDE [Concomitant]
  4. FUROSEMIDE [Concomitant]
  5. DITROPAN [Concomitant]
  6. THEOPHYLLINE [Concomitant]
  7. CALCIUM [Concomitant]

REACTIONS (7)
  - ARTHRALGIA [None]
  - CONTUSION [None]
  - FALL [None]
  - JOINT INJURY [None]
  - NASOPHARYNGITIS [None]
  - RHINORRHOEA [None]
  - WHEEZING [None]
